FAERS Safety Report 8214509-6 (Version None)
Quarter: 2012Q1

REPORT INFORMATION
  Report Type: 
  Country: None (occurrence: None)
  Receive Date: 20120316
  Receipt Date: 20120316
  Transmission Date: 20120608
  Serious: Yes (Other)
  Sender: FDA-Public Use
  Company Number: None

PATIENT
  Age: 18 Year
  Sex: Female
  Weight: 88.45 kg

DRUGS (1)
  1. EXCEDRIN (MIGRAINE) [Suspect]
     Indication: MIGRAINE
     Dosage: 2-4 GEL CAPS
     Route: 048
     Dates: start: 20110901, end: 20120130

REACTIONS (3)
  - ABDOMINAL PAIN UPPER [None]
  - GASTRITIS [None]
  - GASTRIC DISORDER [None]
